FAERS Safety Report 23437575 (Version 1)
Quarter: 2024Q1

REPORT INFORMATION
  Report Type: Spontaneous
  Country: TW (occurrence: TW)
  Receive Date: 20240124
  Receipt Date: 20240124
  Transmission Date: 20240409
  Serious: Yes (Life-Threatening)
  Sender: FDA-Public Use
  Company Number: TW-GE HEALTHCARE-2024CSU000651

PATIENT
  Age: 58 Year
  Sex: Male

DRUGS (2)
  1. OMNIPAQUE [Suspect]
     Active Substance: IOHEXOL
     Indication: Computerised tomogram heart
     Dosage: 88 ML, TOTAL
     Route: 040
     Dates: start: 20240112, end: 20240112
  2. SODIUM CHLORIDE [Concomitant]
     Active Substance: SODIUM CHLORIDE
     Dosage: 3 ML
     Dates: start: 20240112, end: 20240112

REACTIONS (11)
  - Patient uncooperative [Recovered/Resolved]
  - Musculoskeletal stiffness [Recovered/Resolved]
  - Muscular weakness [Recovered/Resolved]
  - Agitation [Recovered/Resolved]
  - Unresponsive to stimuli [Recovered/Resolved]
  - Altered state of consciousness [Recovered/Resolved]
  - Dyspnoea [Recovered/Resolved]
  - Bradycardia [Recovered/Resolved]
  - Dizziness [Recovered/Resolved]
  - Discomfort [Recovered/Resolved]
  - Pruritus [Recovered/Resolved]

NARRATIVE: CASE EVENT DATE: 20240112
